FAERS Safety Report 8079133-7 (Version None)
Quarter: 2012Q1

REPORT INFORMATION
  Report Type: 
  Country: None (occurrence: None)
  Receive Date: 20120128
  Receipt Date: 20110818
  Transmission Date: 20120608
  Serious: No
  Sender: FDA-Public Use
  Company Number: US-ABBOTT-11P-163-0847817-00

PATIENT
  Sex: Female

DRUGS (9)
  1. LEVOTHYROXINE SODIUM [Concomitant]
     Indication: HYPOTHYROIDISM
     Route: 048
  2. GABAPENTIN [Concomitant]
     Indication: NERVE INJURY
     Route: 048
  3. SULFASALAZINE [Concomitant]
     Indication: RHEUMATOID ARTHRITIS
     Route: 048
  4. HUMIRA [Suspect]
     Indication: PSORIASIS
     Dates: start: 20110427, end: 20110803
  5. PERCOCET [Concomitant]
     Indication: PAIN
     Route: 048
  6. XANAX [Concomitant]
     Indication: ANXIETY
     Route: 048
  7. VICODIN [Concomitant]
     Indication: PAIN
     Route: 048
  8. LISINOPRIL [Concomitant]
     Indication: HYPERTENSION
     Route: 048
  9. PRILOSEC [Concomitant]
     Indication: GASTROOESOPHAGEAL REFLUX DISEASE
     Route: 048

REACTIONS (1)
  - PSORIASIS [None]
